FAERS Safety Report 22103935 (Version 1)
Quarter: 2023Q1

REPORT INFORMATION
  Report Type: Report from Study
  Country: US (occurrence: US)
  Receive Date: 20230316
  Receipt Date: 20230316
  Transmission Date: 20230417
  Serious: Yes (Death)
  Sender: FDA-Public Use
  Company Number: US-ABBVIE-4341092

PATIENT
  Age: 85 Year
  Sex: Male

DRUGS (1)
  1. SKYRIZI [Suspect]
     Active Substance: RISANKIZUMAB-RZAA
     Indication: Psoriasis
     Route: 058
     Dates: start: 20210317

REACTIONS (4)
  - Death [Fatal]
  - Carbon dioxide decreased [Unknown]
  - Pneumonia [Unknown]
  - Carbon dioxide increased [Unknown]

NARRATIVE: CASE EVENT DATE: 20230302
